FAERS Safety Report 9758412 (Version 2)
Quarter: 2014Q1

REPORT INFORMATION
  Report Type: Spontaneous
  Country: FR (occurrence: FR)
  Receive Date: 20131216
  Receipt Date: 20140211
  Transmission Date: 20141002
  Serious: Yes (Life-Threatening, Hospitalization)
  Sender: FDA-Public Use
  Company Number: FR-TEVA-449212ISR

PATIENT
  Age: 23 Year
  Sex: Female

DRUGS (2)
  1. ANTADYS [Suspect]
     Route: 048
     Dates: start: 201311, end: 201311
  2. RHINADVIL [Suspect]
     Route: 048
     Dates: start: 201311, end: 201311

REACTIONS (7)
  - Gastric ulcer [Recovering/Resolving]
  - Renal failure acute [Recovering/Resolving]
  - Gastrointestinal disorder [Recovering/Resolving]
  - Drug abuse [Recovering/Resolving]
  - Malnutrition [Recovering/Resolving]
  - Weight increased [Unknown]
  - Asthenia [Unknown]
